FAERS Safety Report 8335051-8 (Version None)
Quarter: 2012Q2

REPORT INFORMATION
  Report Type: 
  Country: None (occurrence: None)
  Receive Date: 20120503
  Receipt Date: 20120423
  Transmission Date: 20120825
  Serious: Yes (Hospitalization)
  Sender: FDA-Public Use
  Company Number: NL-MEDIMMUNE-MEDI-0015073

PATIENT
  Sex: Male
  Weight: 5.2 kg

DRUGS (3)
  1. ANTI-REFLUX MEDICATION [Concomitant]
  2. SYNAGIS [Suspect]
     Route: 030
     Dates: start: 20120225, end: 20120101
  3. SYNAGIS [Suspect]
     Indication: PREMATURE BABY
     Route: 030
     Dates: start: 20111230, end: 20120128

REACTIONS (1)
  - DYSPNOEA [None]
